FAERS Safety Report 21195593 (Version 1)
Quarter: 2022Q3

REPORT INFORMATION
  Report Type: Report from Study
  Country: CN (occurrence: CN)
  Receive Date: 20220810
  Receipt Date: 20220810
  Transmission Date: 20221026
  Serious: Yes (Other)
  Sender: FDA-Public Use
  Company Number: CN-BRISTOL-MYERS SQUIBB COMPANY-2022-085991

PATIENT
  Age: 59 Year
  Sex: Male

DRUGS (2)
  1. OPDIVO [Suspect]
     Active Substance: NIVOLUMAB
     Indication: Gastric cancer
     Dosage: Q3WK
     Route: 041
     Dates: start: 20220329
  2. OPDIVO [Suspect]
     Active Substance: NIVOLUMAB
     Dosage: Q3WK
     Route: 065

REACTIONS (4)
  - Upper respiratory tract infection [Unknown]
  - Dizziness [Unknown]
  - Immunodeficiency [Unknown]
  - Off label use [Unknown]
